FAERS Safety Report 23873719 (Version 1)
Quarter: 2024Q2

REPORT INFORMATION
  Report Type: Spontaneous
  Country: US (occurrence: US)
  Receive Date: 20240520
  Receipt Date: 20240520
  Transmission Date: 20240716
  Serious: No
  Sender: FDA-Public Use
  Company Number: US-HALEON-2176281

PATIENT
  Age: 29 Year
  Sex: Female

DRUGS (1)
  1. SENSODYNE COMPLETE PROTECTION [Suspect]
     Active Substance: STANNOUS FLUORIDE
     Indication: Dental cleaning
     Dosage: EXPDATE:20250731
     Dates: start: 202404, end: 20240505

REACTIONS (3)
  - Gingival bleeding [Not Recovered/Not Resolved]
  - Cyst [Not Recovered/Not Resolved]
  - Mouth haemorrhage [Unknown]

NARRATIVE: CASE EVENT DATE: 20240423
